FAERS Safety Report 9768896 (Version 1)
Quarter: 2013Q4

REPORT INFORMATION
  Report Type: Spontaneous
  Country: JP (occurrence: None)
  Receive Date: 20131216
  Receipt Date: 20131216
  Transmission Date: 20140711
  Serious: Yes (Death, Hospitalization)
  Sender: FDA-Public Use
  Company Number: CO-OR-JP-2013-227

PATIENT
  Age: 65 Year
  Sex: Male

DRUGS (4)
  1. PREDNISOLONE (PREDNISOLONE) [Suspect]
     Indication: PROSTATE CANCER
  2. DOCETAXEL (DOCETAXEL) [Suspect]
     Indication: PROSTATE CANCER
     Dosage: ADMINISTERED AS A 30-MIN INTRAVENOUS INFUSION ON DAYS 2 AND 9. REPEATED EVERY 21 DAYS.
     Route: 042
  3. ESTRAMUSTINE [Suspect]
     Indication: PROSTATE CANCER
     Dosage: ADMINSTERED ON DAYS 1-5 AND DAYS 8-12
     Route: 048
  4. DEXAMETHASONE (INTESTINAL GEL) [Concomitant]

REACTIONS (2)
  - Acute respiratory distress syndrome [None]
  - Interstitial lung disease [None]
